FAERS Safety Report 23103730 (Version 6)
Quarter: 2025Q1

REPORT INFORMATION
  Report Type: Spontaneous
  Country: US (occurrence: US)
  Receive Date: 20231025
  Receipt Date: 20250205
  Transmission Date: 20250409
  Serious: Yes (Hospitalization, Other)
  Sender: PFIZER
  Company Number: US-PFIZER INC-PV202300175542

PATIENT
  Age: 75 Year
  Sex: Male
  Weight: 89 kg

DRUGS (40)
  1. XELJANZ XR [Suspect]
     Active Substance: TOFACITINIB CITRATE
     Indication: Rheumatoid arthritis
     Dosage: 11 MG, DAILY
     Route: 048
     Dates: start: 20230629
  2. XELJANZ XR [Suspect]
     Active Substance: TOFACITINIB CITRATE
     Dosage: 11 MG, DAILY
     Route: 048
     Dates: start: 20230629
  3. XELJANZ XR [Suspect]
     Active Substance: TOFACITINIB CITRATE
     Dosage: 11 MG, 1X/DAY
     Route: 048
     Dates: start: 20230629
  4. XELJANZ XR [Suspect]
     Active Substance: TOFACITINIB CITRATE
     Dosage: 11 MG, 1X/DAY
     Route: 048
     Dates: start: 20230629, end: 202408
  5. XELJANZ XR [Suspect]
     Active Substance: TOFACITINIB CITRATE
     Dosage: 11 MG, 1X/DAY
     Route: 048
     Dates: start: 20230629, end: 202411
  6. XELJANZ XR [Suspect]
     Active Substance: TOFACITINIB CITRATE
     Dosage: 11 MG, DAILY
     Route: 048
     Dates: start: 202307, end: 202308
  7. XELJANZ XR [Suspect]
     Active Substance: TOFACITINIB CITRATE
     Dosage: 11 MG, DAILY
     Route: 048
     Dates: start: 202309
  8. XELJANZ XR [Suspect]
     Active Substance: TOFACITINIB CITRATE
     Dosage: 11 MG, 1X/DAY
     Route: 048
     Dates: start: 202412
  9. XELJANZ XR [Suspect]
     Active Substance: TOFACITINIB CITRATE
     Dosage: 11 MG, 1X/DAY
     Route: 048
     Dates: start: 20230629
  10. ALENDRONATE [Concomitant]
     Active Substance: ALENDRONATE SODIUM
     Dosage: 70 MG,EVERY WEEK IN THE MORNING,AT LEAST 30 MINUTES BEFORE FIRST FOOD,BEVERAGE,OR MEDICATION OF DAY
     Route: 048
  11. ALLEGRA ALLERGY [Concomitant]
     Active Substance: FEXOFENADINE HYDROCHLORIDE
     Dosage: 180 MG, EVERYDAY
     Route: 048
  12. ARMONAIR DIGIHALER [Concomitant]
     Active Substance: FLUTICASONE PROPIONATE
     Dosage: INHALE 1 PUFF EVERY DAY AS NEEDED
     Route: 055
  13. CALCIUM [Concomitant]
     Active Substance: CALCIUM
     Dosage: 600 MG CALCIUM 1 TABLET EVERY DAY (1500 MG) TABLET
     Route: 048
  14. CALCIUM [Concomitant]
     Active Substance: CALCIUM
     Dosage: 1500 MG, EVERY DAY
     Route: 048
  15. CELEBREX [Concomitant]
     Active Substance: CELECOXIB
     Route: 048
  16. COENZYME Q10 [Concomitant]
     Active Substance: DIETARY SUPPLEMENT\UBIDECARENONE
  17. CRESTOR [Concomitant]
     Active Substance: ROSUVASTATIN CALCIUM
     Dosage: 5 MG, EVERY DAY
     Route: 048
  18. CULTURELLE DIGESTIVE HEALTH DAILY PROBIOTIC [Concomitant]
  19. FISH OIL [Concomitant]
     Active Substance: FISH OIL
     Dosage: 1000 MG, EVERY DAY
     Route: 048
  20. FLOVENT HFA [Concomitant]
     Active Substance: FLUTICASONE PROPIONATE
     Dosage: INHALE 1 PUFF 2 TIMES EVERYDAY
     Route: 055
  21. HYDROXYCHLOROQUINE [Concomitant]
     Active Substance: HYDROXYCHLOROQUINE
     Dosage: 400 MG, EVERYDAY
     Route: 048
  22. IPRATROPIUM BROMIDE [Concomitant]
     Active Substance: IPRATROPIUM BROMIDE
     Dosage: 2 SPRAY BY INTRANASAL ROUTE 2 TIMES EVERY DAY IN EACH NOSTRIL
     Route: 045
  23. IRBESARTAN AND HYDROCHLOROTHIAZIDE [Concomitant]
     Active Substance: HYDROCHLOROTHIAZIDE\IRBESARTAN
     Dosage: 1 TABLET EVERY DAY
     Route: 048
  24. LEFLUNOMIDE [Concomitant]
     Active Substance: LEFLUNOMIDE
     Dosage: 20 MG, EVERY DAY
     Route: 048
  25. LYRICA [Concomitant]
     Active Substance: PREGABALIN
     Dosage: 100 MG, 3 TIMES EVERYDAY
     Route: 048
  26. LYSINE [Concomitant]
     Active Substance: LYSINE
  27. MAGNESIUM [Concomitant]
     Active Substance: MAGNESIUM
     Dosage: 250 MG, EVERYDAY
     Route: 048
  28. MAPAP [Concomitant]
     Active Substance: ACETAMINOPHEN
     Dosage: 500 MG, EVERY 8 HOURS AS NEEDED
     Route: 048
  29. METOPROLOL SUCCINATE [Concomitant]
     Active Substance: METOPROLOL SUCCINATE
     Dosage: 25 MG, 1 TABLET EVERY DAY
     Route: 048
  30. MUCINEX DM [Concomitant]
     Active Substance: DEXTROMETHORPHAN HYDROBROMIDE\GUAIFENESIN
     Dosage: 1 DF, EVERY 12 HOURS
     Route: 048
  31. OMEGA-3 FATTY ACIDS [Concomitant]
     Active Substance: OMEGA-3 FATTY ACIDS
  32. OMEGA-3 FATTY ACIDS [Concomitant]
     Active Substance: OMEGA-3 FATTY ACIDS
  33. OMEGA-3 FATTY ACIDS [Concomitant]
     Active Substance: OMEGA-3 FATTY ACIDS
  34. OMEGA-3 FATTY ACIDS [Concomitant]
     Active Substance: OMEGA-3 FATTY ACIDS
  35. PATADAY [Concomitant]
     Active Substance: OLOPATADINE HYDROCHLORIDE
     Dosage: INSTILL 1 DROP EVERY DAY INTO EFFECTED EYE
     Route: 047
  36. TRAMADOL [Concomitant]
     Active Substance: TRAMADOL
     Dosage: 50 MG, EVERY 8 HOURS AS NEEDED
     Route: 048
  37. TYLENOL [Concomitant]
     Active Substance: ACETAMINOPHEN
     Dosage: 1000 MG, EVERY 6 HOURS AS NEEDED
     Route: 048
  38. VITAMIN C [Concomitant]
     Active Substance: ASCORBIC ACID
  39. VITAMIN D3 [Concomitant]
     Active Substance: CHOLECALCIFEROL
     Dosage: 1 DF, EVERYDAY
     Route: 048
  40. ZZZQUIL NIGHTTIME SLEEP-AID [Concomitant]
     Active Substance: DIPHENHYDRAMINE HYDROCHLORIDE
     Dosage: 25 MG 2 AT BEDTIME

REACTIONS (8)
  - Prostate cancer [Unknown]
  - Spinal fusion surgery [Unknown]
  - Spinal operation [Unknown]
  - Deep vein thrombosis [Recovered/Resolved]
  - Infective myositis [Unknown]
  - Infection [Unknown]
  - Gait inability [Unknown]
  - COVID-19 [Unknown]

NARRATIVE: CASE EVENT DATE: 20230601
